FAERS Safety Report 14009760 (Version 1)
Quarter: 2017Q3

REPORT INFORMATION
  Report Type: Report from Study
  Country: BR (occurrence: BR)
  Receive Date: 20170925
  Receipt Date: 20170925
  Transmission Date: 20171128
  Serious: Yes (Other)
  Sender: FDA-Public Use
  Company Number: PHHY2017BR140374

PATIENT
  Age: 89 Year
  Sex: Female
  Weight: 65 kg

DRUGS (1)
  1. FORASEQ [Suspect]
     Active Substance: BUDESONIDE\FORMOTEROL FUMARATE
     Indication: ASTHMA
     Dosage: 1 DF, BID
     Route: 055

REACTIONS (8)
  - Asthenia [Unknown]
  - Malaise [Unknown]
  - Asthmatic crisis [Unknown]
  - Obstructive airways disorder [Unknown]
  - Weight decreased [Recovered/Resolved]
  - Hypophagia [Unknown]
  - Hypokinesia [Unknown]
  - Contusion [Unknown]
